FAERS Safety Report 13398077 (Version 2)
Quarter: 2017Q2

REPORT INFORMATION
  Report Type: Spontaneous
  Country: IL (occurrence: DE)
  Receive Date: 20170403
  Receipt Date: 20170523
  Transmission Date: 20170830
  Serious: Yes (Other)
  Sender: FDA-Public Use
  Company Number: IL-REGENERON PHARMACEUTICALS, INC.-2017-13870

PATIENT

DRUGS (5)
  1. OFLOXACIN. [Concomitant]
     Active Substance: OFLOXACIN
     Dosage: 1 GTT, POSTOPERATIVE
  2. EYLEA [Suspect]
     Active Substance: AFLIBERCEPT
     Dosage: UNK, BOTH EYES
     Dates: start: 201501
  3. EYLEA [Suspect]
     Active Substance: AFLIBERCEPT
     Indication: NEOVASCULAR AGE-RELATED MACULAR DEGENERATION
     Dosage: UNK, LEFT EYE
     Dates: start: 2013
  4. IODINE. [Concomitant]
     Active Substance: IODINE
     Indication: PRODUCT USED FOR UNKNOWN INDICATION
  5. OFLOXACIN. [Concomitant]
     Active Substance: OFLOXACIN
     Indication: PRODUCT USED FOR UNKNOWN INDICATION
     Dosage: 1 GTT, POSTOPERATIVE

REACTIONS (9)
  - Anterior capsule contraction [Unknown]
  - Anterior chamber disorder [Unknown]
  - Atrophy of globe [Unknown]
  - Macular fibrosis [Unknown]
  - Corneal oedema [Unknown]
  - Anterior chamber cell [Unknown]
  - Blindness unilateral [Unknown]
  - Retinal haemorrhage [Unknown]
  - Endophthalmitis [Recovering/Resolving]

NARRATIVE: CASE EVENT DATE: 201501
